FAERS Safety Report 8784857 (Version 1)
Quarter: 2012Q4

REPORT INFORMATION
  Report Type: 
  Country: US (occurrence: None)
  Receive Date: 20120831
  Receipt Date: 20120831
  Transmission Date: 20130627
  Serious: Yes (Life-Threatening, Hospitalization)
  Sender: FDA-Public Use
  Company Number: 2012P1055089

PATIENT
  Age: 34 Year
  Sex: Female

DRUGS (2)
  1. FENTANYL [Suspect]
     Indication: BACK PAIN
     Dosage: 100 UG/HR;X1;TDER ;
     Route: 062
  2. FENTANYL [Suspect]
     Indication: BACK PAIN
     Dosage: x1;PO
     Route: 048

REACTIONS (8)
  - Intentional drug misuse [None]
  - Overdose [None]
  - Unresponsive to stimuli [None]
  - Cyanosis [None]
  - Drug abuse [None]
  - Drug ineffective [None]
  - No therapeutic response [None]
  - Respiratory depression [None]
